FAERS Safety Report 13891377 (Version 3)
Quarter: 2017Q4

REPORT INFORMATION
  Report Type: Spontaneous
  Country: US (occurrence: US)
  Receive Date: 20170822
  Receipt Date: 20171115
  Transmission Date: 20180320
  Serious: No
  Sender: FDA-Public Use
  Company Number: US-PFIZER INC-2017359852

PATIENT
  Age: 66 Year
  Sex: Female

DRUGS (1)
  1. XELJANZ XR [Suspect]
     Active Substance: TOFACITINIB CITRATE
     Indication: RHEUMATOID ARTHRITIS
     Dosage: 11 MG, DAILY
     Route: 048
     Dates: start: 201707, end: 20171005

REACTIONS (6)
  - Pain [Unknown]
  - Visual impairment [Not Recovered/Not Resolved]
  - Dysuria [Unknown]
  - Constipation [Unknown]
  - Abdominal pain upper [Unknown]
  - Pyrexia [Unknown]
